FAERS Safety Report 7789972-5 (Version None)
Quarter: 2011Q3

REPORT INFORMATION
  Report Type: 
  Country: None (occurrence: None)
  Receive Date: 20110930
  Receipt Date: 20100803
  Transmission Date: 20111222
  Serious: No
  Sender: FDA-Public Use
  Company Number: US-ASTRAZENECA-2010SE28840

PATIENT
  Age: 60 Year
  Sex: Female
  Weight: 62.6 kg

DRUGS (1)
  1. ARIMIDEX [Suspect]
     Indication: BREAST CANCER
     Route: 048
     Dates: start: 20050101

REACTIONS (4)
  - FOOT FRACTURE [None]
  - TENDON RUPTURE [None]
  - ARTHRALGIA [None]
  - FALL [None]
